FAERS Safety Report 20059177 (Version 2)
Quarter: 2021Q4

REPORT INFORMATION
  Report Type: Other
  Country: AU (occurrence: AU)
  Receive Date: 20211111
  Receipt Date: 20211115
  Transmission Date: 20220303
  Serious: Yes (Hospitalization)
  Sender: FDA-Public Use
  Company Number: AU-BoehringerIngelheim-2021-BI-136849

PATIENT
  Age: 84 Year
  Sex: Female

DRUGS (1)
  1. ALTEPLASE [Suspect]
     Active Substance: ALTEPLASE
     Indication: Ischaemic stroke
     Dosage: FORM- INFUSION
     Route: 065

REACTIONS (2)
  - Cerebral artery occlusion [Recovering/Resolving]
  - NIH stroke scale abnormal [Unknown]
